FAERS Safety Report 10100927 (Version 1)
Quarter: 2014Q2

REPORT INFORMATION
  Report Type: Spontaneous
  Country: CN (occurrence: CN)
  Receive Date: 20140423
  Receipt Date: 20140423
  Transmission Date: 20141212
  Serious: Yes (Hospitalization, Other)
  Sender: FDA-Public Use
  Company Number: CN-JNJFOC-20140413648

PATIENT
  Age: 29 Day
  Sex: Male
  Weight: 30 kg

DRUGS (2)
  1. MOTRIN [Suspect]
     Route: 048
  2. MOTRIN [Suspect]
     Indication: HEART DISEASE CONGENITAL
     Route: 048
     Dates: start: 20130823, end: 20130824

REACTIONS (3)
  - Blood sodium decreased [Recovered/Resolved]
  - Urine output decreased [Recovered/Resolved]
  - Off label use [Unknown]
